FAERS Safety Report 15977686 (Version 3)
Quarter: 2020Q2

REPORT INFORMATION
  Report Type: Spontaneous
  Country: GB (occurrence: GB)
  Receive Date: 20190218
  Receipt Date: 20200416
  Transmission Date: 20200713
  Serious: Yes (Hospitalization, Other)
  Sender: FDA-Public Use
  Company Number: PHHY2019GB033167

PATIENT
  Age: 50 Year
  Sex: Female

DRUGS (31)
  1. OMEPRAZOLE. [Concomitant]
     Active Substance: OMEPRAZOLE
     Route: 065
  2. OMEPRAZOLE. [Concomitant]
     Active Substance: OMEPRAZOLE
     Route: 065
  3. THIORIDAZINE [Concomitant]
     Active Substance: THIORIDAZINE
     Indication: PSYCHOTIC SYMPTOM
     Route: 065
  4. ZUCLOPENTHIXOL [Concomitant]
     Active Substance: ZUCLOPENTHIXOL
     Route: 065
  5. LITHIUM CARBONATE. [Suspect]
     Active Substance: LITHIUM CARBONATE
     Dosage: 1000 MG, QD, DOSE INCREASED
     Route: 065
  6. OMEPRAZOLE. [Concomitant]
     Active Substance: OMEPRAZOLE
     Indication: PRODUCT USED FOR UNKNOWN INDICATION
     Route: 065
  7. QUETIAPINE. [Suspect]
     Active Substance: QUETIAPINE
     Indication: PSYCHOTIC SYMPTOM
     Dosage: 300MG/DAY
     Route: 065
  8. RISPERIDONE. [Suspect]
     Active Substance: RISPERIDONE
     Indication: PSYCHOTIC SYMPTOM
     Route: 065
  9. LAMOTRIGINE. [Concomitant]
     Active Substance: LAMOTRIGINE
     Route: 065
  10. CHLORPROMAZINE. [Concomitant]
     Active Substance: CHLORPROMAZINE
     Route: 065
  11. LEVOTHYROXINE. [Concomitant]
     Active Substance: LEVOTHYROXINE
     Indication: PRODUCT USED FOR UNKNOWN INDICATION
     Route: 065
  12. LITHIUM CARBONATE. [Suspect]
     Active Substance: LITHIUM CARBONATE
     Indication: HYPOMANIA
     Dosage: 700 MG, QD
     Route: 065
  13. OLANZAPINE. [Concomitant]
     Active Substance: OLANZAPINE
     Route: 065
  14. CARBAMAZEPINE. [Concomitant]
     Active Substance: CARBAMAZEPINE
     Indication: PSYCHOTIC SYMPTOM
     Route: 065
  15. CARBAMAZEPINE. [Concomitant]
     Active Substance: CARBAMAZEPINE
     Route: 065
  16. CARBAMAZEPINE. [Concomitant]
     Active Substance: CARBAMAZEPINE
     Route: 065
  17. TRIMETHOPRIM. [Concomitant]
     Active Substance: TRIMETHOPRIM
     Indication: ANTIBIOTIC PROPHYLAXIS
     Dosage: UNK
     Route: 065
  18. ZUCLOPENTHIXOL [Concomitant]
     Active Substance: ZUCLOPENTHIXOL
     Indication: PSYCHOTIC SYMPTOM
     Route: 065
  19. CHLORPROMAZINE. [Concomitant]
     Active Substance: CHLORPROMAZINE
     Indication: PSYCHOTIC SYMPTOM
     Route: 065
  20. ZUCLOPENTHIXOL [Concomitant]
     Active Substance: ZUCLOPENTHIXOL
     Route: 065
  21. CHLORPROMAZINE. [Concomitant]
     Active Substance: CHLORPROMAZINE
     Route: 065
  22. TRIMETHOPRIM. [Concomitant]
     Active Substance: TRIMETHOPRIM
     Indication: PSYCHOTIC DISORDER
     Route: 065
  23. TRIMETHOPRIM. [Concomitant]
     Active Substance: TRIMETHOPRIM
     Route: 065
  24. THIORIDAZINE [Concomitant]
     Active Substance: THIORIDAZINE
     Route: 065
  25. LAMOTRIGINE. [Concomitant]
     Active Substance: LAMOTRIGINE
     Indication: PSYCHOTIC SYMPTOM
     Route: 065
  26. LAMOTRIGINE. [Concomitant]
     Active Substance: LAMOTRIGINE
     Route: 065
  27. VALPROATE SODIUM. [Suspect]
     Active Substance: VALPROATE SODIUM
     Indication: PRODUCT USED FOR UNKNOWN INDICATION
     Dosage: 1250 MG, QD
     Route: 065
  28. TRIMETHOPRIM. [Concomitant]
     Active Substance: TRIMETHOPRIM
     Indication: PROPHYLAXIS
     Route: 065
  29. THIORIDAZINE [Concomitant]
     Active Substance: THIORIDAZINE
     Route: 065
  30. OLANZAPINE. [Concomitant]
     Active Substance: OLANZAPINE
     Indication: PSYCHOTIC SYMPTOM
     Route: 065
  31. OLANZAPINE. [Concomitant]
     Active Substance: OLANZAPINE
     Route: 065

REACTIONS (31)
  - Disturbance in attention [Recovered/Resolved]
  - Altered visual depth perception [Recovered/Resolved]
  - Hallucinations, mixed [Unknown]
  - Aggression [Recovered/Resolved]
  - Depression [Recovered/Resolved]
  - Hallucination, visual [Recovered/Resolved]
  - Memory impairment [Recovered/Resolved]
  - Polydipsia [Recovered/Resolved]
  - Mobility decreased [Recovered/Resolved]
  - Resting tremor [Recovered/Resolved]
  - Tardive dyskinesia [Recovered/Resolved]
  - Confusional state [Recovered/Resolved]
  - Muscle twitching [Recovered/Resolved]
  - Cogwheel rigidity [Recovered/Resolved]
  - Parkinsonian rest tremor [Recovered/Resolved]
  - Cognitive disorder [Recovered/Resolved]
  - Hypothyroidism [Recovered/Resolved]
  - Hallucination, auditory [Recovered/Resolved]
  - Extrapyramidal disorder [Not Recovered/Not Resolved]
  - Decreased eye contact [Unknown]
  - Urinary incontinence [Recovered/Resolved]
  - Nephropathy [Unknown]
  - Disorientation [Recovered/Resolved]
  - Neurotoxicity [Recovered/Resolved]
  - Anal incontinence [Recovered/Resolved]
  - Lethargy [Recovered/Resolved]
  - Fine motor skill dysfunction [Recovered/Resolved]
  - Dementia [Recovered/Resolved]
  - Thinking abnormal [Recovered/Resolved]
  - Screaming [Unknown]
  - Fear [Recovered/Resolved]

NARRATIVE: CASE EVENT DATE: 2013
